FAERS Safety Report 18701793 (Version 5)
Quarter: 2021Q2

REPORT INFORMATION
  Report Type: Report from Study
  Country: US (occurrence: US)
  Receive Date: 20210105
  Receipt Date: 20210511
  Transmission Date: 20210717
  Serious: Yes (Other)
  Sender: FDA-Public Use
  Company Number: US-BIOVITRUM-2020US6459

PATIENT
  Age: 42 Year
  Sex: Male

DRUGS (2)
  1. KINERET [Suspect]
     Active Substance: ANAKINRA
     Indication: ANKYLOSING SPONDYLITIS
     Route: 058
     Dates: start: 20190424
  2. KINERET [Suspect]
     Active Substance: ANAKINRA
     Route: 058
     Dates: start: 201904

REACTIONS (9)
  - Gastrooesophageal reflux disease [Unknown]
  - Illness [Not Recovered/Not Resolved]
  - Head discomfort [Unknown]
  - Product dose omission issue [Unknown]
  - Stress [Unknown]
  - COVID-19 [Unknown]
  - Back pain [Unknown]
  - Hypersensitivity [Unknown]
  - Off label use [Unknown]

NARRATIVE: CASE EVENT DATE: 20190417
